FAERS Safety Report 11587448 (Version 2)
Quarter: 2015Q4

REPORT INFORMATION
  Report Type: Spontaneous
  Country: IT (occurrence: IT)
  Receive Date: 20151001
  Receipt Date: 20151005
  Transmission Date: 20160304
  Serious: Yes (Hospitalization)
  Sender: FDA-Public Use
  Company Number: PHHY2015IT117647

PATIENT
  Age: 3 Year
  Sex: Female

DRUGS (1)
  1. DEFERASIROX [Suspect]
     Active Substance: DEFERASIROX
     Indication: THALASSAEMIA
     Dosage: 33 MG/KG, QD, SINCE THE AGE OF 2 YEARS
     Route: 048

REACTIONS (12)
  - Metabolic acidosis [Unknown]
  - Liver injury [Unknown]
  - Azotaemia [Unknown]
  - Dehydration [Unknown]
  - Hypoglycaemia [Unknown]
  - Stupor [Unknown]
  - Myoclonus [Unknown]
  - Pyrexia [Unknown]
  - Vomiting [Unknown]
  - Anuria [Unknown]
  - Transaminases increased [Unknown]
  - Trismus [Unknown]
